FAERS Safety Report 16918015 (Version 2)
Quarter: 2019Q4

REPORT INFORMATION
  Report Type: Spontaneous
  Country: ES (occurrence: ES)
  Receive Date: 20191015
  Receipt Date: 20191017
  Transmission Date: 20200122
  Serious: Yes (Other)
  Sender: FDA-Public Use
  Company Number: ES-009507513-1910ESP006769

PATIENT
  Age: 64 Year
  Sex: Female

DRUGS (4)
  1. CILASTATIN SODIUM (+) IMIPENEM [Suspect]
     Active Substance: CILASTATIN SODIUM\IMIPENEM
     Indication: SEPSIS
  2. MEROPENEM. [Suspect]
     Active Substance: MEROPENEM
     Indication: GENITOURINARY TRACT INFECTION
     Dosage: 1-1-1
     Route: 042
     Dates: start: 20190207, end: 20190209
  3. CILASTATIN SODIUM (+) IMIPENEM [Suspect]
     Active Substance: CILASTATIN SODIUM\IMIPENEM
     Indication: GENITOURINARY TRACT INFECTION
     Dosage: 1-1-1
     Route: 042
     Dates: start: 20190204, end: 20190207
  4. THERAPY UNSPECIFIED [Suspect]
     Active Substance: UNSPECIFIED INGREDIENT
     Dosage: UNK

REACTIONS (2)
  - Hypokalaemia [Recovered/Resolved]
  - Rhabdomyolysis [Unknown]

NARRATIVE: CASE EVENT DATE: 20190209
